FAERS Safety Report 12819795 (Version 1)
Quarter: 2016Q4

REPORT INFORMATION
  Report Type: Report from Study
  Country: None (occurrence: DE)
  Receive Date: 20161006
  Receipt Date: 20161006
  Transmission Date: 20170207
  Serious: Yes (Other)
  Sender: FDA-Public Use
  Company Number: DE-ABBVIE-16K-062-1740408-00

PATIENT
  Sex: Male

DRUGS (4)
  1. DUODOPA [Suspect]
     Active Substance: CARBIDOPA\LEVODOPA
     Indication: PARKINSON^S DISEASE
     Dosage: MD 7.7 ML; CRT 2.6 ML/H; ED 1.5 ML
     Route: 050
     Dates: start: 20070626
  2. DOXEPIN [Concomitant]
     Active Substance: DOXEPIN
     Indication: RESTLESSNESS
     Dosage: AS NEEDED (MOSTLY 13:00-14:00)
  3. ZOPICLON [Concomitant]
     Active Substance: ZOPICLONE
     Indication: SLEEP DISORDER
     Dosage: 3,75 (EVENINGS)
  4. CARBIDOPA. [Concomitant]
     Active Substance: CARBIDOPA
     Indication: PRODUCT USED FOR UNKNOWN INDICATION
     Dosage: NOCTE

REACTIONS (2)
  - Urological examination abnormal [Not Recovered/Not Resolved]
  - Bacterial infection [Not Recovered/Not Resolved]
